FAERS Safety Report 23185833 (Version 1)
Quarter: 2023Q4

REPORT INFORMATION
  Report Type: Spontaneous
  Country: US (occurrence: None)
  Receive Date: 20231115
  Receipt Date: 20231115
  Transmission Date: 20240109
  Serious: Yes (Other)
  Sender: FDA-Public Use
  Company Number: 2023A253826

PATIENT
  Sex: Female

DRUGS (1)
  1. TAGRISSO [Suspect]
     Active Substance: OSIMERTINIB
     Indication: Neoplasm malignant
     Route: 048

REACTIONS (9)
  - Palpitations [Unknown]
  - Arrhythmia [Unknown]
  - Bone cancer [Unknown]
  - Metastases to central nervous system [Unknown]
  - Metastases to bone [Unknown]
  - Blood disorder [Unknown]
  - Fatigue [Unknown]
  - Nausea [Unknown]
  - Blood magnesium abnormal [Unknown]
